FAERS Safety Report 18607058 (Version 1)
Quarter: 2020Q4

REPORT INFORMATION
  Report Type: Other
  Country: US (occurrence: US)
  Receive Date: 20201212
  Receipt Date: 20201212
  Transmission Date: 20210114
  Serious: Yes (Hospitalization)
  Sender: FDA-Public Use
  Company Number: US-ROCHE-2688678

PATIENT
  Sex: Female

DRUGS (7)
  1. ALLEGRA [Concomitant]
     Active Substance: FEXOFENADINE HYDROCHLORIDE
  2. XOLAIR [Suspect]
     Active Substance: OMALIZUMAB
     Dosage: ONGOING : NO
     Route: 065
     Dates: start: 2018
  3. LISINOPRIL. [Concomitant]
     Active Substance: LISINOPRIL
  4. XOLAIR [Suspect]
     Active Substance: OMALIZUMAB
     Indication: ASTHMA
     Dosage: ONGOING:YES
     Route: 065
     Dates: start: 2017
  5. PREDNISONE. [Concomitant]
     Active Substance: PREDNISONE
  6. ZYRTEC (UNITED STATES) [Concomitant]
  7. CLARITIN [Concomitant]
     Active Substance: LORATADINE

REACTIONS (1)
  - Anaphylactic reaction [Recovered/Resolved]
